FAERS Safety Report 4833947-2 (Version None)
Quarter: 2005Q4

REPORT INFORMATION
  Report Type: 
  Country: None (occurrence: None)
  Receive Date: 20051118
  Receipt Date: 20051118
  Transmission Date: 20060501
  Serious: Yes (Life-Threatening)
  Sender: FDA-Public Use
  Company Number: None

PATIENT
  Age: 54 Year
  Sex: Male

DRUGS (2)
  1. CEFUROXIME [Suspect]
     Indication: PROPHYLAXIS
     Dosage: 600MG OF 1.5GM DOSE  ONCE IV DRIP
     Route: 041
     Dates: start: 20050815, end: 20050815
  2. CEFUROXIME [Suspect]
     Indication: SURGERY
     Dosage: 600MG OF 1.5GM DOSE  ONCE IV DRIP
     Route: 041
     Dates: start: 20050815, end: 20050815

REACTIONS (8)
  - ANAPHYLACTIC REACTION [None]
  - BLOOD FIBRINOGEN INCREASED [None]
  - BLOOD PRESSURE IMMEASURABLE [None]
  - CARDIAC ARREST [None]
  - DISSEMINATED INTRAVASCULAR COAGULATION [None]
  - DRUG HYPERSENSITIVITY [None]
  - INFUSION RELATED REACTION [None]
  - POST PROCEDURAL HAEMORRHAGE [None]
